FAERS Safety Report 8507642-2 (Version None)
Quarter: 2012Q3

REPORT INFORMATION
  Report Type: 
  Country: None (occurrence: None)
  Receive Date: 20120713
  Receipt Date: 20120706
  Transmission Date: 20120928
  Serious: No
  Sender: FDA-Public Use
  Company Number: US-BIOGENIDEC-2012BI023989

PATIENT
  Age: 64 Year
  Sex: Female

DRUGS (1)
  1. TYSABRI [Suspect]
     Indication: MULTIPLE SCLEROSIS
     Route: 042
     Dates: start: 20120328

REACTIONS (8)
  - UPPER RESPIRATORY TRACT CONGESTION [None]
  - MUSCULAR WEAKNESS [None]
  - PHARYNGITIS BACTERIAL [None]
  - BODY TEMPERATURE INCREASED [None]
  - RASH MACULAR [None]
  - STOMATITIS [None]
  - SKIN DISCOLOURATION [None]
  - CONTUSION [None]
